FAERS Safety Report 7609620-4 (Version None)
Quarter: 2011Q3

REPORT INFORMATION
  Report Type: 
  Country: None (occurrence: None)
  Receive Date: 20110714
  Receipt Date: 20110706
  Transmission Date: 20111222
  Serious: No
  Sender: FDA-Public Use
  Company Number: US-MUTUAL PHARMACEUTICAL COMPANY, INC.-PNTM20110008

PATIENT
  Sex: Female
  Weight: 89.892 kg

DRUGS (3)
  1. FLUOXETINE [Concomitant]
     Indication: DEPRESSION
     Route: 048
  2. METOPROLOL TARTRATE [Concomitant]
     Indication: HYPERTENSION
     Route: 048
  3. PHENTERMINE [Suspect]
     Indication: WEIGHT DECREASED
     Route: 048
     Dates: start: 20110501, end: 20110525

REACTIONS (3)
  - FEELING JITTERY [None]
  - MYDRIASIS [None]
  - VISION BLURRED [None]
